FAERS Safety Report 12230638 (Version 2)
Quarter: 2016Q2

REPORT INFORMATION
  Report Type: Other
  Country: US (occurrence: US)
  Receive Date: 20160401
  Receipt Date: 20160419
  Transmission Date: 20160815
  Serious: Yes (Hospitalization)
  Sender: FDA-Public Use
  Company Number: US-UNITED THERAPEUTICS-UNT-2016-004768

PATIENT
  Age: 35 Year
  Sex: Female
  Weight: 52.15 kg

DRUGS (2)
  1. REMODULIN [Suspect]
     Active Substance: TREPROSTINIL
     Indication: PULMONARY ARTERIAL HYPERTENSION
     Dosage: 0.0965 ?G/KG, CONTINUING
     Route: 058
     Dates: start: 20090123
  2. REVATIO [Concomitant]
     Active Substance: SILDENAFIL CITRATE
     Indication: PRODUCT USED FOR UNKNOWN INDICATION

REACTIONS (3)
  - Infusion site infection [Recovered/Resolved]
  - Infusion site pain [Recovered/Resolved]
  - Infusion site hypersensitivity [Recovered/Resolved]

NARRATIVE: CASE EVENT DATE: 201603
